FAERS Safety Report 5273661-5 (Version None)
Quarter: 2007Q1

REPORT INFORMATION
  Report Type: 
  Country: None (occurrence: None)
  Receive Date: 20070321
  Receipt Date: 20070321
  Transmission Date: 20070707
  Serious: Yes (Other)
  Sender: FDA-Public Use
  Company Number: None

PATIENT
  Age: 36 Year
  Sex: Male
  Weight: 81.6475 kg

DRUGS (1)
  1. ORAJEL PROTECTIVE MOUTH SORE DIS BENIZOCAINE 15MG DEL PHARMACEUTICALS [Suspect]
     Indication: APHTHOUS STOMATITIS
     Dosage: 1 DISC ONCE DENTAL
     Route: 004
     Dates: start: 20070319, end: 20070319

REACTIONS (6)
  - GLOSSODYNIA [None]
  - MOUTH HAEMORRHAGE [None]
  - ORAL PAIN [None]
  - TONGUE DISORDER [None]
  - TONGUE HAEMORRHAGE [None]
  - TONGUE INJURY [None]
